FAERS Safety Report 6045433-5 (Version None)
Quarter: 2009Q1

REPORT INFORMATION
  Report Type: 
  Country: None (occurrence: None)
  Receive Date: 20090116
  Receipt Date: 20090116
  Transmission Date: 20090719
  Serious: Yes (Other)
  Sender: FDA-Public Use
  Company Number: None

PATIENT
  Sex: Female
  Weight: 45.3597 kg

DRUGS (1)
  1. FOLBEE BRECKENRIDGE PHARMACUTICAL CONTRACT PHARMACAL [Suspect]
     Indication: CARDIAC OPERATION
     Dosage: 1 TABLET 2 X PER DAY PO
     Route: 048

REACTIONS (3)
  - DIZZINESS [None]
  - NAUSEA [None]
  - SARCOMA [None]
